FAERS Safety Report 5602498-X (Version None)
Quarter: 2008Q1

REPORT INFORMATION
  Report Type: 
  Country: None (occurrence: None)
  Receive Date: 20080125
  Receipt Date: 20080121
  Transmission Date: 20080703
  Serious: Yes (Hospitalization)
  Sender: FDA-Public Use
  Company Number: A0704377A

PATIENT
  Age: 20 Year
  Sex: Female

DRUGS (4)
  1. PAXIL CR [Suspect]
     Indication: DEPRESSION
     Dosage: 50MG TWICE PER DAY
     Route: 048
     Dates: start: 19990101
  2. KEPPRA [Concomitant]
  3. HEART MEDICATION [Concomitant]
  4. XANAX [Concomitant]

REACTIONS (4)
  - CONFUSIONAL STATE [None]
  - CONVULSION [None]
  - FOAMING AT MOUTH [None]
  - MEMORY IMPAIRMENT [None]
